FAERS Safety Report 18636845 (Version 1)
Quarter: 2020Q4

REPORT INFORMATION
  Report Type: Spontaneous
  Country: US (occurrence: US)
  Receive Date: 20201218
  Receipt Date: 20201218
  Transmission Date: 20210114
  Serious: Yes (Other)
  Sender: FDA-Public Use
  Company Number: US-BRISTOL-MYERS SQUIBB COMPANY-BMS-2020-106104

PATIENT
  Sex: Male
  Weight: 89.8 kg

DRUGS (1)
  1. COUMADIN [Suspect]
     Active Substance: WARFARIN SODIUM
     Indication: ATRIAL FIBRILLATION
     Dosage: UNK
     Route: 065

REACTIONS (6)
  - Peripheral swelling [Unknown]
  - Coagulation factor V level decreased [Unknown]
  - Renal impairment [Unknown]
  - Thrombosis [Unknown]
  - Aortic valve disease [Unknown]
  - Cardiac murmur [Unknown]
